FAERS Safety Report 6417454-1 (Version None)
Quarter: 2009Q4

REPORT INFORMATION
  Report Type: 
  Country: None (occurrence: None)
  Receive Date: 20091027
  Receipt Date: 20091027
  Transmission Date: 20100525
  Serious: Yes (Other)
  Sender: FDA-Public Use
  Company Number: None

PATIENT
  Sex: Male
  Weight: 134.7183 kg

DRUGS (1)
  1. CETUXIMAB [Suspect]
     Indication: RECTAL CANCER
     Dosage: 400 MG/M2 WEEKLY IV
     Route: 042
     Dates: start: 20091026, end: 20091026

REACTIONS (2)
  - CYTOKINE RELEASE SYNDROME [None]
  - INFUSION RELATED REACTION [None]
